FAERS Safety Report 15563790 (Version 2)
Quarter: 2018Q4

REPORT INFORMATION
  Report Type: Report from Study
  Country: NO (occurrence: NO)
  Receive Date: 20181029
  Receipt Date: 20181108
  Transmission Date: 20190205
  Serious: Yes (Hospitalization)
  Sender: FDA-Public Use
  Company Number: NO-UCBSA-2018047440

PATIENT
  Sex: Male

DRUGS (1)
  1. BRIVARACETAM [Suspect]
     Active Substance: BRIVARACETAM
     Indication: EPILEPSY
     Dosage: UNK

REACTIONS (1)
  - Seizure [Unknown]

NARRATIVE: CASE EVENT DATE: 2018
